FAERS Safety Report 4549675-7 (Version None)
Quarter: 2005Q1

REPORT INFORMATION
  Report Type: 
  Country: None (occurrence: None)
  Receive Date: 20050106
  Receipt Date: 20041228
  Transmission Date: 20050727
  Serious: Yes (Hospitalization)
  Sender: FDA-Public Use
  Company Number: 2005-123851-NL

PATIENT
  Age: 16 Year
  Sex: Female

DRUGS (2)
  1. VECURONIUM BROMIDE [Suspect]
     Indication: GENERAL ANAESTHESIA
     Dosage: 8 MG ONCE
     Route: 042
     Dates: start: 20041224, end: 20041224
  2. PROPOFOL [Suspect]
     Indication: GENERAL ANAESTHESIA
     Dosage: 120 MG ONCE
     Route: 042
     Dates: start: 20041224, end: 20041224

REACTIONS (3)
  - ANAPHYLACTOID REACTION [None]
  - HYPOXIA [None]
  - PROCEDURAL COMPLICATION [None]
